FAERS Safety Report 9465214 (Version 2)
Quarter: 2014Q1

REPORT INFORMATION
  Report Type: Spontaneous
  Country: US (occurrence: US)
  Receive Date: 20130819
  Receipt Date: 20140224
  Transmission Date: 20141002
  Serious: Yes (Other)
  Sender: FDA-Public Use
  Company Number: US-B.I. PHARMACEUTICALS,INC./RIDGEFIELD-2013-BI-25308BP

PATIENT
  Age: 71 Year
  Sex: Female
  Weight: 111.58 kg

DRUGS (9)
  1. PRADAXA [Suspect]
     Indication: ATRIAL FIBRILLATION
     Route: 065
     Dates: start: 201108, end: 20120819
  2. SYMBICORT INHALER [Concomitant]
     Route: 065
  3. RANITIDINE [Concomitant]
     Route: 065
  4. REGLAN [Concomitant]
     Route: 065
  5. METOLAZONE [Concomitant]
     Route: 065
  6. ASPIRIN [Concomitant]
     Route: 065
  7. SINGULAIR [Concomitant]
     Route: 065
  8. LARONOLYN [Concomitant]
     Route: 065
  9. LASIX [Concomitant]
     Route: 065

REACTIONS (1)
  - Gastrointestinal haemorrhage [Unknown]
